FAERS Safety Report 6343129-3 (Version None)
Quarter: 2009Q3

REPORT INFORMATION
  Report Type: 
  Country: None (occurrence: None)
  Receive Date: 20090821
  Receipt Date: 20090514
  Transmission Date: 20100115
  Serious: No
  Sender: FDA-Public Use
  Company Number: 8046412

PATIENT
  Sex: Male

DRUGS (1)
  1. CIMZIA [Suspect]
     Dates: start: 20090422

REACTIONS (2)
  - ABDOMINAL PAIN [None]
  - FISTULA DISCHARGE [None]
